FAERS Safety Report 8246025-X (Version None)
Quarter: 2012Q1

REPORT INFORMATION
  Report Type: 
  Country: None (occurrence: None)
  Receive Date: 20120330
  Receipt Date: 20120320
  Transmission Date: 20120608
  Serious: Yes (Other)
  Sender: FDA-Public Use
  Company Number: IT-JNJFOC-20120310660

PATIENT
  Age: 17 Year
  Sex: Male

DRUGS (1)
  1. REMICADE [Suspect]
     Indication: CROHN'S DISEASE
     Dosage: CYCLIC INFUSION
     Route: 042
     Dates: start: 20120313, end: 20120313

REACTIONS (6)
  - HEADACHE [None]
  - DIARRHOEA [None]
  - ERYTHEMA [None]
  - PYREXIA [None]
  - INFUSION RELATED REACTION [None]
  - VOMITING [None]
